FAERS Safety Report 5460945-0 (Version None)
Quarter: 2007Q3

REPORT INFORMATION
  Report Type: 
  Country: None (occurrence: None)
  Receive Date: 20070823
  Receipt Date: 20070504
  Transmission Date: 20080115
  Serious: No
  Sender: FDA-Public Use
  Company Number: SPV1-2007-02631

PATIENT
  Age: 69 Year
  Sex: Male
  Weight: 74.8 kg

DRUGS (7)
  1. FOSRENOL [Suspect]
     Indication: HYPERPHOSPHATAEMIA
     Dosage: 1 DOSE TABLET TID PO, ORAL
     Route: 048
     Dates: start: 20070301
  2. OMEPRAZOLE [Concomitant]
  3. COREG [Concomitant]
  4. PLAVIX [Concomitant]
  5. AMBIEN [Concomitant]
  6. ZOLOFT [Concomitant]
  7. ALLOPURINOL [Concomitant]

REACTIONS (5)
  - BLOOD CALCIUM ABNORMAL [None]
  - BLOOD CREATININE ABNORMAL [None]
  - BLOOD PHOSPHORUS ABNORMAL [None]
  - BLOOD SODIUM ABNORMAL [None]
  - DIALYSIS DEVICE COMPLICATION [None]
